FAERS Safety Report 8847435 (Version 1)
Quarter: 2012Q4

REPORT INFORMATION
  Report Type: 
  Country: DE (occurrence: DE)
  Receive Date: 20121018
  Receipt Date: 20121018
  Transmission Date: 20130627
  Serious: Yes (Hospitalization, Other)
  Sender: FDA-Public Use
  Company Number: DE-BAYER-2012-109255

PATIENT

DRUGS (1)
  1. ULTRAVIST [Suspect]

REACTIONS (4)
  - Angioedema [None]
  - Blood pressure decreased [None]
  - Generalised erythema [None]
  - Skin swelling [None]
